FAERS Safety Report 5928934-7 (Version None)
Quarter: 2008Q4

REPORT INFORMATION
  Report Type: 
  Country: None (occurrence: None)
  Receive Date: 20081020
  Receipt Date: 20081014
  Transmission Date: 20090506
  Serious: Yes (Other)
  Sender: FDA-Public Use
  Company Number: 2008SP020112

PATIENT
  Age: 33 Year
  Sex: Female

DRUGS (1)
  1. BETAMETHASONE SODIUM PHOSPHATE [Suspect]
     Indication: OTITIS EXTERNA
     Dosage: 5 ML; QD; TOP
     Route: 061
     Dates: start: 20080919, end: 20080919

REACTIONS (4)
  - DYSPNOEA [None]
  - NAUSEA [None]
  - PALPITATIONS [None]
  - VERTIGO [None]
